FAERS Safety Report 18257745 (Version 1)
Quarter: 2020Q3

REPORT INFORMATION
  Report Type: Spontaneous
  Country: FR (occurrence: FR)
  Receive Date: 20200911
  Receipt Date: 20200911
  Transmission Date: 20201103
  Serious: Yes (Other)
  Sender: FDA-Public Use
  Company Number: FR-MYLANLABS-2020M1077139

PATIENT
  Age: 20 Year
  Sex: Male
  Weight: 51 kg

DRUGS (1)
  1. TRAMADOL. [Suspect]
     Active Substance: TRAMADOL
     Indication: PRODUCT USED FOR UNKNOWN INDICATION
     Dosage: 4 A 8 GELULES PAR PRISE UNE FOIS PAR SEMAINE
     Route: 048

REACTIONS (7)
  - Drug use disorder [Unknown]
  - Somnolence [Unknown]
  - Vision blurred [Unknown]
  - Vomiting [Unknown]
  - Nausea [Unknown]
  - Vertigo [Unknown]
  - Initial insomnia [Unknown]

NARRATIVE: CASE EVENT DATE: 20200706
